FAERS Safety Report 9320500 (Version 1)
Quarter: 2013Q2

REPORT INFORMATION
  Report Type: Spontaneous
  Country: US (occurrence: US)
  Receive Date: 20130530
  Receipt Date: 20130530
  Transmission Date: 20140414
  Serious: Yes (Other)
  Sender: FDA-Public Use
  Company Number: PHHY2013US053442

PATIENT
  Age: 50 Year
  Sex: Male

DRUGS (5)
  1. PREDNISONE [Suspect]
     Indication: ASTHMA
     Dosage: 10 MG, PER DAY
  2. ALBUTEROL [Concomitant]
  3. AMLODIPINE [Concomitant]
  4. DILTIAZEM [Concomitant]
  5. WARFARIN [Concomitant]

REACTIONS (8)
  - Appendicitis perforated [Recovered/Resolved]
  - Appendicitis [Recovered/Resolved]
  - Abdominal pain lower [Recovered/Resolved]
  - Peritonitis [Recovered/Resolved]
  - Erythema [Recovered/Resolved]
  - Oedema [Recovered/Resolved]
  - Mucosal ulceration [Recovered/Resolved]
  - Tinea versicolour [Recovered/Resolved]
